FAERS Safety Report 6083478-X (Version None)
Quarter: 2009Q1

REPORT INFORMATION
  Report Type: 
  Country: None (occurrence: None)
  Receive Date: 20090217
  Receipt Date: 20090204
  Transmission Date: 20090719
  Serious: Yes (Other)
  Sender: FDA-Public Use
  Company Number: 2009EK000014

PATIENT
  Age: 40 Year
  Sex: Male

DRUGS (5)
  1. NICARDIPINE HCL [Suspect]
     Indication: OFF LABEL USE
     Dosage: 4 MG; BID; INTH
     Route: 037
  2. NICARDIPINE HCL [Suspect]
     Indication: VASOSPASM
     Dosage: 4 MG; BID; INTH
     Route: 037
  3. HYPERTONIC SALINE [Concomitant]
  4. SIMVASTATIN [Concomitant]
  5. NIMODIPINE [Concomitant]

REACTIONS (2)
  - BRAIN HERNIATION [None]
  - BRAIN OEDEMA [None]
